FAERS Safety Report 5568712-4 (Version None)
Quarter: 2007Q4

REPORT INFORMATION
  Report Type: 
  Country: None (occurrence: None)
  Receive Date: 20071220
  Receipt Date: 20061120
  Transmission Date: 20080405
  Serious: No
  Sender: FDA-Public Use
  Company Number: A0628105A

PATIENT
  Age: 78 Year
  Sex: Male

DRUGS (7)
  1. AVODART [Suspect]
     Indication: BENIGN PROSTATIC HYPERPLASIA
     Dosage: 1CAP PER DAY
     Route: 048
  2. SAW PALMETTO [Concomitant]
  3. MULTI-VITAMIN [Concomitant]
  4. NIACIN [Concomitant]
  5. VITAMIN B COMPLEX CAP [Concomitant]
  6. ASPIRIN [Concomitant]
  7. ALPRAZOLAM [Concomitant]

REACTIONS (3)
  - DYSPNOEA [None]
  - HYPERHIDROSIS [None]
  - YAWNING [None]
